FAERS Safety Report 8435966-6 (Version None)
Quarter: 2012Q2

REPORT INFORMATION
  Report Type: 
  Country: None (occurrence: None)
  Receive Date: 20120614
  Receipt Date: 20120608
  Transmission Date: 20120825
  Serious: Yes (Hospitalization, Other)
  Sender: FDA-Public Use
  Company Number: US-PFIZER INC-2010116909

PATIENT
  Sex: Male

DRUGS (6)
  1. DILANTIN [Suspect]
     Indication: CONVULSION
     Dosage: 25 MG, 3X/DAY
     Route: 048
     Dates: start: 20061028
  2. AUGMENTIN '125' [Concomitant]
     Indication: OTITIS MEDIA
     Dosage: 250 MG, UNK
     Dates: start: 20061024, end: 20061103
  3. DILANTIN-125 [Suspect]
     Indication: CONVULSION
     Dosage: 2ML MORNING, 1ML AFTERNOON AND 2ML NIGHT
     Route: 048
     Dates: start: 20061107, end: 20061114
  4. CEFTRIAXONE [Concomitant]
     Indication: OTITIS MEDIA
     Dosage: UNK
     Dates: start: 20061024, end: 20061103
  5. DILANTIN [Suspect]
     Dosage: 50MG MORNING, 25MG AFTERNOON AND 50MG NIGHT
     Route: 048
     Dates: start: 20061101
  6. ZONEGRAN [Concomitant]
     Indication: CONVULSION
     Dosage: 25 MG, 2X/DAY
     Route: 048
     Dates: start: 20061028, end: 20061114

REACTIONS (1)
  - STEVENS-JOHNSON SYNDROME [None]
